FAERS Safety Report 13596187 (Version 1)
Quarter: 2017Q2

REPORT INFORMATION
  Report Type: Spontaneous
  Country: US (occurrence: US)
  Receive Date: 20170531
  Receipt Date: 20170531
  Transmission Date: 20170830
  Serious: No
  Sender: FDA-Public Use
  Company Number: US-JNJFOC-20170322152

PATIENT
  Age: 78 Year
  Sex: Female
  Weight: 55.34 kg

DRUGS (1)
  1. TYLENOL EXTRA STRENGTH [Suspect]
     Active Substance: ACETAMINOPHEN
     Indication: ARTHRALGIA
     Dosage: 2-3X PER DAY
     Route: 048
     Dates: start: 20170318

REACTIONS (2)
  - Inappropriate schedule of drug administration [Unknown]
  - Drug effect delayed [Unknown]

NARRATIVE: CASE EVENT DATE: 20170318
